FAERS Safety Report 9302893 (Version 1)
Quarter: 2013Q2

REPORT INFORMATION
  Report Type: Spontaneous
  Country: IT (occurrence: IT)
  Receive Date: 20130522
  Receipt Date: 20130522
  Transmission Date: 20140414
  Serious: Yes (Other)
  Sender: FDA-Public Use
  Company Number: IT-TEVA-405035ISR

PATIENT
  Age: 69 Year
  Sex: Female

DRUGS (11)
  1. LEVOFLOXACIN [Suspect]
     Dosage: 500 MILLIGRAM DAILY;
     Route: 048
     Dates: start: 20090101, end: 20130509
  2. LEVOFLOXACIN [Suspect]
     Dosage: 250 MILLIGRAM DAILY;
     Route: 048
  3. COAPROVEL [Suspect]
     Indication: HYPERTENSION
     Dosage: 1 DOSAGE FORMS DAILY;
     Route: 048
     Dates: start: 20090101, end: 20130509
  4. INSULINA [Concomitant]
  5. SIMVASTATINA [Concomitant]
  6. FERRO-GRAD [Concomitant]
  7. ZANEDIP [Concomitant]
  8. CARDIOASPIRINA [Concomitant]
     Dosage: GASTRO-RESISTANT TABLET
  9. TACHIPIRINA [Concomitant]
  10. CARDURA [Concomitant]
  11. LANSOX [Concomitant]

REACTIONS (1)
  - Renal failure chronic [Recovering/Resolving]
